FAERS Safety Report 21383464 (Version 4)
Quarter: 2022Q4

REPORT INFORMATION
  Report Type: Spontaneous
  Country: KR (occurrence: KR)
  Receive Date: 20220927
  Receipt Date: 20221114
  Transmission Date: 20230112
  Serious: No
  Sender: FDA-Public Use
  Company Number: KR-009507513-2209KOR008703

PATIENT
  Age: 62 Year
  Sex: Female
  Weight: 52 kg

DRUGS (16)
  1. PREVYMIS [Suspect]
     Active Substance: LETERMOVIR
     Indication: Antiviral prophylaxis
     Dosage: STRENGTH 480MG , PO, ONCE DAILY
     Route: 048
     Dates: start: 20210515, end: 20210516
  2. PREVYMIS [Suspect]
     Active Substance: LETERMOVIR
     Dosage: STRENGTH 480MG , PO, ONCE DAILY
     Route: 048
     Dates: start: 20210619, end: 20210718
  3. PREVYMIS [Suspect]
     Active Substance: LETERMOVIR
     Indication: Antiviral prophylaxis
     Dosage: STRENGTH: 480MG/24ML; IV, ONCE DAILY
     Route: 042
     Dates: start: 20210517, end: 20210618
  4. DICAMAX [Concomitant]
     Indication: Osteoporosis
     Dosage: 1 TAB, QD
     Route: 048
     Dates: start: 20210501
  5. ZOYLEX [ACICLOVIR] [Concomitant]
     Indication: Antiviral prophylaxis
     Dosage: 375 MILLIGRAM, BID
     Route: 042
     Dates: start: 20210729
  6. AMLODIPINE OROTATE [Concomitant]
     Active Substance: AMLODIPINE OROTATE
     Indication: Hypertension
     Dosage: 5 MILLIGRAM, QD
     Route: 048
     Dates: start: 20210602
  7. ALLOPURINOL [Concomitant]
     Active Substance: ALLOPURINOL
     Indication: Acute myeloid leukaemia
     Dosage: 100 MILLIGRAM, BID
     Route: 048
     Dates: start: 20210719, end: 20210730
  8. DEXILANT [Concomitant]
     Active Substance: DEXLANSOPRAZOLE
     Indication: Gastrooesophageal reflux prophylaxis
     Dosage: 30 MILLIGRAM, QD
     Route: 048
     Dates: start: 20210618, end: 20210730
  9. DEXILANT [Concomitant]
     Active Substance: DEXLANSOPRAZOLE
     Indication: Gastritis prophylaxis
  10. URSODIOL [Concomitant]
     Active Substance: URSODIOL
     Indication: Prophylaxis
     Dosage: 100 MILLIGRAM, TID
     Route: 048
     Dates: start: 20210501, end: 20210730
  11. SULFAMETHOXAZOLE\TRIMETHOPRIM [Concomitant]
     Active Substance: SULFAMETHOXAZOLE\TRIMETHOPRIM
     Indication: Infection prophylaxis
     Dosage: 1 DOSAGE FORM, ONCE DAILY
     Route: 048
     Dates: start: 20210503, end: 20210730
  12. TACROBELL SR [Concomitant]
     Indication: Prophylaxis against graft versus host disease
     Dosage: 1 MILLIGRAM, QD
     Route: 048
     Dates: start: 20210625, end: 20210718
  13. VACRAX [ACICLOVIR] [Concomitant]
     Indication: Antiviral prophylaxis
     Dosage: 400 MILLIGRAM, BID
     Route: 048
     Dates: start: 20210618, end: 20210728
  14. SPORANOX [Concomitant]
     Active Substance: ITRACONAZOLE
     Indication: Pneumonia
     Dosage: 200 MILLIGRAM, QD
     Route: 048
     Dates: start: 20210531, end: 20210718
  15. METHYLPREDNISOLONE [Concomitant]
     Active Substance: METHYLPREDNISOLONE
     Indication: Acute graft versus host disease
     Dosage: 4 MILLIGRAM, QD
     Route: 048
     Dates: start: 20210712, end: 20210718
  16. DIFLUCAN [Concomitant]
     Active Substance: FLUCONAZOLE
     Indication: Oral candidiasis
     Dosage: 200 MILLIGRAM, QD
     Route: 042
     Dates: start: 20210728

REACTIONS (2)
  - Urine output decreased [Unknown]
  - Oxygen therapy [Unknown]

NARRATIVE: CASE EVENT DATE: 20210801
